FAERS Safety Report 11179509 (Version 4)
Quarter: 2021Q1

REPORT INFORMATION
  Report Type: Spontaneous
  Country: CA (occurrence: CA)
  Receive Date: 20150611
  Receipt Date: 20210311
  Transmission Date: 20210419
  Serious: Yes (Other)
  Sender: FDA-Public Use
  Company Number: CA-ROCHE-1589846

PATIENT
  Age: 59 Year
  Sex: Male

DRUGS (9)
  1. PANTOPRAZOLE MAGNESIUM [Concomitant]
     Active Substance: PANTOPRAZOLE MAGNESIUM
  2. OLMETEC [Concomitant]
     Active Substance: OLMESARTAN MEDOXOMIL
  3. METHOTREXATE. [Concomitant]
     Active Substance: METHOTREXATE
     Indication: RHEUMATOID ARTHRITIS
  4. ARAVA [Concomitant]
     Active Substance: LEFLUNOMIDE
     Route: 065
  5. ACTEMRA [Suspect]
     Active Substance: TOCILIZUMAB
     Indication: PRODUCT USED FOR UNKNOWN INDICATION
     Route: 065
     Dates: end: 20150326
  6. ENBREL [Suspect]
     Active Substance: ETANERCEPT
     Indication: RHEUMATOID ARTHRITIS
     Route: 065
  7. FENTANYL. [Concomitant]
     Active Substance: FENTANYL
     Route: 062
  8. OLMESARTAN MEDOXOMIL. [Concomitant]
     Active Substance: OLMESARTAN MEDOXOMIL
  9. ORENCIA [Suspect]
     Active Substance: ABATACEPT
     Indication: PRODUCT USED FOR UNKNOWN INDICATION
     Route: 065
     Dates: end: 20121025

REACTIONS (7)
  - Herpes ophthalmic [Unknown]
  - Rash [Unknown]
  - Drug ineffective [Unknown]
  - Drug hypersensitivity [Unknown]
  - Joint swelling [Unknown]
  - Diverticulitis [Unknown]
  - Therapeutic product effect incomplete [Unknown]
